FAERS Safety Report 13177072 (Version 1)
Quarter: 2017Q1

REPORT INFORMATION
  Report Type: Report from Study
  Country: US (occurrence: US)
  Receive Date: 20170201
  Receipt Date: 20170201
  Transmission Date: 20170428
  Serious: No
  Sender: FDA-Public Use
  Company Number: US-EXELIXIS-CABO-16006998

PATIENT
  Sex: Male

DRUGS (13)
  1. CABOMETYX [Suspect]
     Active Substance: CABOZANTINIB S-MALATE
     Indication: RENAL CANCER
     Dosage: 60 MG, QD
     Route: 048
     Dates: start: 20160806
  2. CHLORTHALIDONE. [Concomitant]
     Active Substance: CHLORTHALIDONE
  3. SYNTHROID [Concomitant]
     Active Substance: LEVOTHYROXINE SODIUM
  4. CARAFATE [Concomitant]
     Active Substance: SUCRALFATE
  5. POTASSIUM [Concomitant]
     Active Substance: POTASSIUM
  6. GABAPENTIN. [Concomitant]
     Active Substance: GABAPENTIN
  7. ALLOPURINOL. [Concomitant]
     Active Substance: ALLOPURINOL
  8. PROTONIX [Concomitant]
     Active Substance: PANTOPRAZOLE SODIUM
  9. PRAVASTATIN. [Concomitant]
     Active Substance: PRAVASTATIN
  10. SINGULAIR [Concomitant]
     Active Substance: MONTELUKAST SODIUM
  11. VITAMIN B [Concomitant]
     Active Substance: VITAMIN B
  12. CALCIUM [Concomitant]
     Active Substance: CALCIUM
  13. VALSARTAN. [Concomitant]
     Active Substance: VALSARTAN

REACTIONS (11)
  - Hyperchlorhydria [Unknown]
  - Gastrointestinal pain [Not Recovered/Not Resolved]
  - Pruritus [Recovered/Resolved]
  - Faeces hard [Not Recovered/Not Resolved]
  - Dysphonia [Not Recovered/Not Resolved]
  - Diarrhoea [Unknown]
  - Neuropathy peripheral [Unknown]
  - Constipation [Unknown]
  - Gingivitis [Unknown]
  - Hypertension [Unknown]
  - Fear [Unknown]
